FAERS Safety Report 18589078 (Version 1)
Quarter: 2020Q4

REPORT INFORMATION
  Report Type: Spontaneous
  Country: US (occurrence: US)
  Receive Date: 20201208
  Receipt Date: 20201208
  Transmission Date: 20210114
  Serious: Yes (Other)
  Sender: FDA-Public Use
  Company Number: US-JNJFOC-20201204745

PATIENT
  Sex: Female

DRUGS (2)
  1. USTEKINUMAB [Suspect]
     Active Substance: USTEKINUMAB
     Indication: CROHN^S DISEASE
     Route: 058
     Dates: start: 2019
  2. USTEKINUMAB [Suspect]
     Active Substance: USTEKINUMAB

REACTIONS (2)
  - Therapeutic response decreased [Unknown]
  - Crohn^s disease [Unknown]
